FAERS Safety Report 21255269 (Version 6)
Quarter: 2022Q4

REPORT INFORMATION
  Report Type: Report from Study
  Country: GB (occurrence: GB)
  Receive Date: 20220825
  Receipt Date: 20221019
  Transmission Date: 20230113
  Serious: Yes (Other)
  Sender: FDA-Public Use
  Company Number: GB-VERTEX PHARMACEUTICALS-2022-012249

PATIENT
  Age: 56 Year
  Sex: Female
  Weight: 60 kg

DRUGS (14)
  1. PLACEBO [Suspect]
     Active Substance: UNSPECIFIED INGREDIENT
     Indication: Cystic fibrosis
     Dosage: UNK
     Route: 048
     Dates: start: 20220620, end: 202209
  2. ELEXACAFTOR\IVACAFTOR\TEZACAFTOR [Suspect]
     Active Substance: ELEXACAFTOR\IVACAFTOR\TEZACAFTOR
     Indication: Cystic fibrosis
     Dosage: 2 TABLETS, ONCE DAILY
     Route: 048
     Dates: start: 20220620, end: 202209
  3. ELEXACAFTOR\IVACAFTOR\TEZACAFTOR [Concomitant]
     Active Substance: ELEXACAFTOR\IVACAFTOR\TEZACAFTOR
     Indication: Cystic fibrosis
     Dosage: UNK
     Route: 048
     Dates: start: 202104
  4. ELEXACAFTOR\IVACAFTOR\TEZACAFTOR [Concomitant]
     Active Substance: ELEXACAFTOR\IVACAFTOR\TEZACAFTOR
     Dosage: UNK
     Route: 048
     Dates: start: 20220817, end: 20220912
  5. AZITHROMYCIN [Concomitant]
     Active Substance: AZITHROMYCIN
     Indication: Cystic fibrosis lung
     Dosage: 500 MG 3XWEEKLY
     Route: 048
     Dates: start: 20100811
  6. VITAMIN E [Concomitant]
     Active Substance: .ALPHA.-TOCOPHEROL
     Indication: Hypovitaminosis
     Dosage: 75 IU, OD
     Dates: start: 20200109
  7. POLYETHYLENE GLYCOL 3350\POTASSIUM CHLORIDE\SODIUM BICARBONATE\SODIUM [Concomitant]
     Active Substance: POLYETHYLENE GLYCOL 3350\POTASSIUM CHLORIDE\SODIUM BICARBONATE\SODIUM CHLORIDE
     Indication: Distal intestinal obstruction syndrome
     Dosage: 2 SATCHET, OD
     Dates: start: 20130624
  8. DESLORATADINE [Concomitant]
     Active Substance: DESLORATADINE
     Indication: Rhinitis
     Dosage: 5 MG, OD
     Dates: start: 20100729
  9. TIOTROPIUM BROMIDE [Concomitant]
     Active Substance: TIOTROPIUM BROMIDE
     Indication: Cystic fibrosis lung
     Dosage: 10 MICROGRAM
     Dates: start: 20100929
  10. SERETIDE [Concomitant]
     Active Substance: FLUTICASONE PROPIONATE\SALMETEROL XINAFOATE
     Indication: Cystic fibrosis lung
     Dosage: 250 MICROGRAM, BID
     Dates: start: 20100525
  11. ALBUTEROL [Concomitant]
     Active Substance: ALBUTEROL
     Indication: Cystic fibrosis
     Dosage: 2 PUFFS, PRN
     Dates: start: 20100929
  12. OXYGEN [Concomitant]
     Active Substance: OXYGEN
     Indication: Cystic fibrosis lung
     Dosage: 2 LITER, PRN
     Route: 065
  13. VITAMINS [Concomitant]
     Active Substance: VITAMINS
     Indication: Hypovitaminosis
     Dosage: 3 TABS OD
     Route: 065
     Dates: start: 20100811
  14. FLUCONAZOLE [Concomitant]
     Active Substance: FLUCONAZOLE
     Indication: Candida infection
     Dosage: UNK
     Dates: start: 20220923

REACTIONS (1)
  - Suicidal ideation [Recovered/Resolved]

NARRATIVE: CASE EVENT DATE: 20220802
